FAERS Safety Report 19011779 (Version 1)
Quarter: 2021Q1

REPORT INFORMATION
  Report Type: Spontaneous
  Country: US (occurrence: US)
  Receive Date: 20210315
  Receipt Date: 20210315
  Transmission Date: 20210420
  Serious: Yes (Death, Other)
  Sender: FDA-Public Use
  Company Number: US-PFIZER INC-2021242381

PATIENT

DRUGS (2)
  1. RIFAMPIN. [Suspect]
     Active Substance: RIFAMPIN
     Dosage: UNK
  2. VANCOMYCIN HCL [Suspect]
     Active Substance: VANCOMYCIN HYDROCHLORIDE
     Dosage: UNK

REACTIONS (2)
  - Death [Fatal]
  - Delirium [Unknown]
